FAERS Safety Report 4438445-6 (Version None)
Quarter: 2004Q3

REPORT INFORMATION
  Report Type: 
  Country: None (occurrence: None)
  Receive Date: 20040831
  Receipt Date: 20040825
  Transmission Date: 20050211
  Serious: Yes (Hospitalization)
  Sender: FDA-Public Use
  Company Number: PHBS2004GB11254

PATIENT
  Age: 36 Year
  Sex: Female

DRUGS (7)
  1. CYCLOSPORINE [Suspect]
     Indication: COLITIS ULCERATIVE
     Dosage: 2 MG/KG/DAY
     Route: 042
  2. CYCLOSPORINE [Suspect]
     Route: 048
  3. PENTASA [Concomitant]
     Dosage: 1 G, BID
     Route: 048
  4. PREDNISOLONE [Concomitant]
     Dosage: 40-60 MG/DAY
     Route: 048
  5. PREDNISOLONE [Concomitant]
     Route: 042
  6. PENTASA [Concomitant]
     Route: 054
  7. AZATHIOPRINE [Concomitant]
     Dosage: 150 MG/DAY
     Route: 048

REACTIONS (6)
  - ANTEPARTUM HAEMORRHAGE [None]
  - BLOOD CREATININE INCREASED [None]
  - CAESAREAN SECTION [None]
  - DRUG EXPOSURE DURING PREGNANCY [None]
  - DRUG LEVEL INCREASED [None]
  - NORMAL NEWBORN [None]
